FAERS Safety Report 23447787 (Version 1)
Quarter: 2024Q1

REPORT INFORMATION
  Report Type: Spontaneous
  Country: DE (occurrence: DE)
  Receive Date: 20240126
  Receipt Date: 20240126
  Transmission Date: 20240409
  Serious: Yes (Other)
  Sender: FDA-Public Use
  Company Number: DE-009507513-2401DEU014912

PATIENT
  Age: 53 Year
  Sex: Female

DRUGS (1)
  1. LETERMOVIR [Suspect]
     Active Substance: LETERMOVIR
     Indication: Cytomegalovirus infection
     Dosage: 480 MILLIGRAM, QD
     Route: 048

REACTIONS (2)
  - Pathogen resistance [Unknown]
  - Off label use [Unknown]
